FAERS Safety Report 7656376-5 (Version None)
Quarter: 2011Q3

REPORT INFORMATION
  Report Type: 
  Country: None (occurrence: None)
  Receive Date: 20110804
  Receipt Date: 20110725
  Transmission Date: 20111222
  Serious: Yes (Death)
  Sender: FDA-Public Use
  Company Number: US-GLAXOSMITHKLINE-A0933005A

PATIENT
  Age: 87 Year
  Sex: Female

DRUGS (9)
  1. PROMACTA [Suspect]
     Indication: IDIOPATHIC THROMBOCYTOPENIC PURPURA
     Dosage: 50MG PER DAY
     Route: 048
     Dates: start: 20100127
  2. FUROSEMIDE [Concomitant]
  3. STARLIX [Concomitant]
  4. GEMFIBROZIL [Concomitant]
  5. NATEGLINIDE [Concomitant]
     Route: 048
  6. ACTOS [Concomitant]
  7. PROCRIT [Concomitant]
  8. POTASSIUM CHLORIDE [Concomitant]
  9. LEUKINE [Concomitant]

REACTIONS (2)
  - DEATH [None]
  - HEPATIC NEOPLASM MALIGNANT [None]
